FAERS Safety Report 5546730-X (Version None)
Quarter: 2007Q4

REPORT INFORMATION
  Report Type: 
  Country: None (occurrence: None)
  Receive Date: 20071211
  Receipt Date: 20071130
  Transmission Date: 20080405
  Serious: No
  Sender: FDA-Public Use
  Company Number: CZ-BAXTER-2007BH008768

PATIENT
  Age: 38 Year
  Sex: Female

DRUGS (5)
  1. GAMMAGARD S/D [Suspect]
     Indication: IMMUNODEFICIENCY COMMON VARIABLE
     Route: 042
     Dates: start: 20070906, end: 20070906
  2. PARALEN [Concomitant]
     Indication: PREMEDICATION
     Dates: start: 20070906
  3. ZODAC [Concomitant]
     Indication: PREMEDICATION
     Dates: start: 20070906
  4. PREDNISONE [Concomitant]
     Indication: PREMEDICATION
     Dates: start: 20070906
  5. IMMUNOGLOBULINS [Concomitant]
     Indication: ANAPHYLACTOID REACTION
     Dates: start: 20050101

REACTIONS (2)
  - ANAPHYLACTOID REACTION [None]
  - INFUSION RELATED REACTION [None]
